FAERS Safety Report 9061368 (Version 2)
Quarter: 2013Q1

REPORT INFORMATION
  Report Type: Report from Study
  Country: DE (occurrence: DE)
  Receive Date: 20130204
  Receipt Date: 20130308
  Transmission Date: 20140127
  Serious: Yes (Death)
  Sender: FDA-Public Use
  Company Number: DE-CELGENEUS-062-21880-13014470

PATIENT
  Age: 68 Year
  Sex: Male
  Weight: 83 kg

DRUGS (2)
  1. REVLIMID [Suspect]
     Indication: PLASMACYTOMA
     Route: 048
     Dates: start: 20121119, end: 20130107
  2. BENDAMUSTINE [Concomitant]
     Indication: PLASMACYTOMA
     Route: 065
     Dates: start: 201301

REACTIONS (2)
  - Multi-organ failure [Fatal]
  - Septic shock [Fatal]
